FAERS Safety Report 7686382-6 (Version None)
Quarter: 2011Q3

REPORT INFORMATION
  Report Type: 
  Country: None (occurrence: None)
  Receive Date: 20110816
  Receipt Date: 20110805
  Transmission Date: 20111222
  Serious: Yes (Other)
  Sender: FDA-Public Use
  Company Number: NL-NOVOPROD-329430

PATIENT

DRUGS (12)
  1. INSULATARD PENFILL [Suspect]
     Indication: TYPE 2 DIABETES MELLITUS
     Dosage: UNK
     Route: 065
  2. METFORMIN HCL [Concomitant]
     Dosage: 1 U, QD
  3. NITROGLYCERIN [Concomitant]
  4. ACETYLSALICYLIC ACID SRT [Concomitant]
  5. NOVORAPID PENFILL [Concomitant]
  6. AMITRIPTYLINE HCL [Concomitant]
     Dosage: 1 U, QD
  7. METORPOLOLTARTRAAT A [Concomitant]
     Dosage: 1 U, QD
  8. ISOSORBID MONONITRATE [Concomitant]
  9. BUDESONIDE [Concomitant]
  10. PANTOPRAZOLE [Concomitant]
  11. PRAVASTATIN [Concomitant]
  12. QUINAPRIL HCL [Concomitant]

REACTIONS (2)
  - PRODUCT PHYSICAL ISSUE [None]
  - TACHYCARDIA [None]
